FAERS Safety Report 26188000 (Version 1)
Quarter: 2025Q4

REPORT INFORMATION
  Report Type: Spontaneous
  Country: US (occurrence: US)
  Receive Date: 20251222
  Receipt Date: 20251222
  Transmission Date: 20260118
  Serious: No
  Sender: TEIKOKU
  Company Number: US-TPU-TPU-2025-00628

PATIENT
  Sex: Female

DRUGS (2)
  1. LIDOCAINE PATCH [Suspect]
     Active Substance: LIDOCAINE
     Indication: Arthralgia
     Dates: start: 20251211
  2. LIDOCAINE PATCH [Suspect]
     Active Substance: LIDOCAINE
     Indication: Arthralgia

REACTIONS (1)
  - Therapeutic product effect incomplete [Unknown]
